FAERS Safety Report 10335895 (Version 1)
Quarter: 2014Q3

REPORT INFORMATION
  Report Type: Spontaneous
  Country: US (occurrence: US)
  Receive Date: 20140723
  Receipt Date: 20140723
  Transmission Date: 20150326
  Serious: No
  Sender: FDA-Public Use
  Company Number: US-BRISTOL-MYERS SQUIBB COMPANY-19199371

PATIENT
  Age: 86 Year
  Sex: Male
  Weight: 63.04 kg

DRUGS (3)
  1. LACTASE [Concomitant]
     Active Substance: LACTASE
     Indication: GASTRIC DISORDER
  2. LACTOSE [Concomitant]
     Active Substance: LACTOSE
  3. COUMADIN [Suspect]
     Active Substance: WARFARIN SODIUM
     Indication: ATRIAL FIBRILLATION
     Dosage: 10 YEARS

REACTIONS (1)
  - International normalised ratio increased [Unknown]
